FAERS Safety Report 5674204-4 (Version None)
Quarter: 2008Q1

REPORT INFORMATION
  Report Type: 
  Country: None (occurrence: None)
  Receive Date: 20080320
  Receipt Date: 20080311
  Transmission Date: 20080703
  Serious: Yes (Hospitalization)
  Sender: FDA-Public Use
  Company Number: PHHY2008JP01754

PATIENT
  Age: 83 Year
  Sex: Male
  Weight: 63 kg

DRUGS (16)
  1. DIOVAN [Suspect]
     Indication: HYPERTENSION
     Dosage: 80 MG, QD
     Route: 048
     Dates: start: 20021218, end: 20051025
  2. LASIX [Suspect]
     Dosage: 20 MG/DAY
     Route: 048
     Dates: start: 20030731, end: 20051025
  3. MOBIC [Suspect]
     Indication: OSTEOARTHRITIS
     Dosage: 10 MG/DAY
     Route: 048
     Dates: start: 20041202, end: 20051025
  4. CARDENALIN [Concomitant]
     Dosage: 4 MG, UNK
     Route: 048
     Dates: start: 20000413, end: 20051025
  5. TENAXIL [Concomitant]
     Dosage: 0.5 MG, UNK
     Route: 048
     Dates: start: 20020925, end: 20030924
  6. ACTOS [Concomitant]
     Dosage: 30 MG, UNK
     Route: 048
     Dates: start: 20010202, end: 20030130
  7. BASEN [Concomitant]
     Dosage: 600 MG, UNK
     Route: 048
     Dates: start: 20011211, end: 20031126
  8. GLIMICRON [Concomitant]
     Dosage: 40 MG, UNK
     Route: 048
     Dates: start: 20021218, end: 20030130
  9. BUFFERIN [Concomitant]
     Dosage: 81 MG, UNK
     Route: 048
     Dates: start: 20021211, end: 20030130
  10. AMARYL [Concomitant]
     Indication: DIABETES MELLITUS
     Dosage: 2 MG, UNK
     Route: 048
     Dates: start: 20030215, end: 20051025
  11. GLYCORAN [Concomitant]
     Indication: DIABETES MELLITUS
     Dosage: 600 MG, UNK
     Dates: start: 20031127, end: 20051025
  12. ALOSITOL [Concomitant]
     Indication: HYPERURICAEMIA
     Dosage: 100 MG, UNK
     Route: 048
     Dates: start: 20031016, end: 20051025
  13. OMEPRAL [Concomitant]
     Indication: GASTRIC ULCER
     Dosage: 20 MG, UNK
     Route: 048
     Dates: start: 20030731, end: 20051025
  14. NORVASC [Concomitant]
     Dosage: 2.5 MG, UNK
     Route: 048
     Dates: start: 20040225
  15. ATELEC [Concomitant]
     Dosage: 2.5 MG, UNK
     Route: 048
     Dates: end: 20051029
  16. IRSOGLADINE MALEATE [Concomitant]
     Indication: GASTRITIS PROPHYLAXIS
     Dosage: 4 MG, UNK
     Route: 048
     Dates: start: 20041202, end: 20051025

REACTIONS (5)
  - GASTRIC ULCER [None]
  - HAEMATEMESIS [None]
  - HYPERURICAEMIA [None]
  - MYALGIA [None]
  - POLYMYALGIA RHEUMATICA [None]
